FAERS Safety Report 6389222-0 (Version None)
Quarter: 2009Q4

REPORT INFORMATION
  Report Type: 
  Country: None (occurrence: None)
  Receive Date: 20091006
  Receipt Date: 20091001
  Transmission Date: 20100525
  Serious: Yes (Other)
  Sender: FDA-Public Use
  Company Number: US-ALLERGAN-0912686US

PATIENT
  Age: 58 Year
  Sex: Female

DRUGS (3)
  1. BOTOX [Suspect]
     Indication: TORTICOLLIS
     Dosage: 300 UNITS, SINGLE
     Route: 030
     Dates: start: 20001228, end: 20001228
  2. BOTOX [Suspect]
     Dosage: AT LEAST 50 UNITS
     Route: 030
     Dates: start: 20010101, end: 20010101
  3. UNSPECIFIED PAIN MEDICATIONS [Concomitant]
     Dosage: UNK

REACTIONS (5)
  - BONE ATROPHY [None]
  - LIMB DEFORMITY [None]
  - MULTIPLE MYELOMA [None]
  - OVERDOSE [None]
  - SPONDYLOARTHROPATHY [None]
